FAERS Safety Report 10723757 (Version 1)
Quarter: 2015Q1

REPORT INFORMATION
  Report Type: Spontaneous
  Country: US (occurrence: None)
  Receive Date: 20150116
  Receipt Date: 20150116
  Transmission Date: 20150721
  Serious: Yes (Hospitalization)
  Sender: FDA-Public Use
  Company Number: None

PATIENT
  Age: 66 Year
  Sex: Male
  Weight: 116 kg

DRUGS (12)
  1. CALCITROL [Concomitant]
     Active Substance: CALCITRIOL
  2. MTVI [Concomitant]
  3. CARVEDILOL. [Concomitant]
     Active Substance: CARVEDILOL
  4. HYDRALAZINE [Concomitant]
     Active Substance: HYDRALAZINE HYDROCHLORIDE
  5. ALLOPURINOL. [Concomitant]
     Active Substance: ALLOPURINOL
  6. AMLODIPINE [Concomitant]
     Active Substance: AMLODIPINE BESYLATE
  7. FERROUS FURAMATE [Concomitant]
  8. FUROSEMIDE. [Concomitant]
     Active Substance: FUROSEMIDE
  9. GLIPIZIDE. [Concomitant]
     Active Substance: GLIPIZIDE
  10. GLIPIZIDE. [Suspect]
     Active Substance: GLIPIZIDE
     Indication: DIABETES MELLITUS
     Dosage: DATES OF USE - CHRONIC
     Route: 048
  11. INSULIN ASPART [Concomitant]
     Active Substance: INSULIN ASPART
  12. LOSARTAN [Concomitant]
     Active Substance: LOSARTAN

REACTIONS (1)
  - Chronic kidney disease [None]

NARRATIVE: CASE EVENT DATE: 20150113
